FAERS Safety Report 8294502-8 (Version None)
Quarter: 2012Q2

REPORT INFORMATION
  Report Type: 
  Country: None (occurrence: None)
  Receive Date: 20120418
  Receipt Date: 20120416
  Transmission Date: 20120825
  Serious: Yes (Death, Other)
  Sender: FDA-Public Use
  Company Number: PHHY2012AR029256

PATIENT
  Sex: Female

DRUGS (1)
  1. EXFORGE [Suspect]
     Indication: BLOOD PRESSURE

REACTIONS (5)
  - HYPOPHAGIA [None]
  - MUSCULOSKELETAL DISCOMFORT [None]
  - DEPRESSION [None]
  - CARDIO-RESPIRATORY ARREST [None]
  - DEPRESSED MOOD [None]
